FAERS Safety Report 6476232-8 (Version None)
Quarter: 2009Q4

REPORT INFORMATION
  Report Type: 
  Country: None (occurrence: None)
  Receive Date: 20091206
  Receipt Date: 20090116
  Transmission Date: 20100525
  Serious: No
  Sender: FDA-Public Use
  Company Number: US-AMGEN-KDL328878

PATIENT
  Sex: Male

DRUGS (4)
  1. ENBREL [Suspect]
     Indication: PSORIASIS
     Dates: start: 20021220
  2. DIOVAN [Concomitant]
     Dates: start: 20070101
  3. SIMVASTATIN [Concomitant]
     Dates: start: 20070101
  4. SINGULAIR [Concomitant]
     Dates: start: 20070301

REACTIONS (2)
  - PSORIASIS [None]
  - THERAPEUTIC RESPONSE DECREASED [None]
